FAERS Safety Report 7138801-1 (Version None)
Quarter: 2010Q4

REPORT INFORMATION
  Report Type: 
  Country: None (occurrence: None)
  Receive Date: 20101206
  Receipt Date: 20101124
  Transmission Date: 20110411
  Serious: Yes (Hospitalization)
  Sender: FDA-Public Use
  Company Number: US-ELI_LILLY_AND_COMPANY-US201011007255

PATIENT
  Sex: Female

DRUGS (3)
  1. HUMATROPE [Suspect]
     Indication: GROWTH HORMONE DEFICIENCY
     Dosage: 0.8 MG, DAILY (1/D)
     Dates: start: 20100701
  2. METOPROLOL [Concomitant]
  3. ESTROGEN NOS [Concomitant]

REACTIONS (1)
  - HYSTERECTOMY [None]
